FAERS Safety Report 4873312-5 (Version None)
Quarter: 2005Q4

REPORT INFORMATION
  Report Type: 
  Country: None (occurrence: None)
  Receive Date: 20051201
  Receipt Date: 20050805
  Transmission Date: 20060501
  Serious: No
  Sender: FDA-Public Use
  Company Number: 2005PV000897

PATIENT
  Age: 46 Year
  Sex: Female
  Weight: 95.2554 kg

DRUGS (4)
  1. BYETTA [Suspect]
     Indication: DIABETES MELLITUS NON-INSULIN-DEPENDENT
     Dosage: 5 MCG; BID; SC
     Route: 058
     Dates: start: 20050727
  2. ACTOS [Concomitant]
  3. TYLENOL (CAPLET) [Concomitant]
  4. ADVIL [Concomitant]

REACTIONS (10)
  - ABDOMINAL DISTENSION [None]
  - BLOOD GLUCOSE INCREASED [None]
  - FATIGUE [None]
  - FEELING ABNORMAL [None]
  - GASTRIC DISORDER [None]
  - INJECTION SITE BRUISING [None]
  - INSOMNIA [None]
  - THERAPEUTIC RESPONSE UNEXPECTED [None]
  - WEIGHT DECREASED [None]
  - WEIGHT INCREASED [None]
